FAERS Safety Report 13773658 (Version 1)
Quarter: 2017Q3

REPORT INFORMATION
  Report Type: Spontaneous
  Country: SG (occurrence: SG)
  Receive Date: 20170720
  Receipt Date: 20170720
  Transmission Date: 20171127
  Serious: Yes (Other)
  Sender: FDA-Public Use
  Company Number: SG-PFIZER INC-1364932

PATIENT
  Age: 28 Year
  Sex: Female
  Weight: 88 kg

DRUGS (4)
  1. DEXAMETHASONE. [Concomitant]
     Active Substance: DEXAMETHASONE
     Indication: PREMEDICATION
     Dosage: 10 MG, WEEKLY
     Route: 042
     Dates: start: 20120706, end: 20120706
  2. DIPHENHYDRAMINE. [Concomitant]
     Active Substance: DIPHENHYDRAMINE
     Indication: PREMEDICATION
     Dosage: 25 MG, WEEKLY
     Route: 042
     Dates: start: 20120706, end: 20120706
  3. RANITIDINE. [Concomitant]
     Active Substance: RANITIDINE
     Indication: PREMEDICATION
     Dosage: 50 MG, WEEKLY
     Route: 042
     Dates: start: 20120706, end: 20120706
  4. PACLITAXEL. [Suspect]
     Active Substance: PACLITAXEL
     Indication: CHEMOTHERAPY
     Dosage: 150 MG, WEEKLY
     Route: 042
     Dates: start: 20120706, end: 20120706

REACTIONS (2)
  - Feeling hot [Recovered/Resolved]
  - Nasal congestion [Recovered/Resolved]

NARRATIVE: CASE EVENT DATE: 20120706
